FAERS Safety Report 18842481 (Version 1)
Quarter: 2021Q1

REPORT INFORMATION
  Report Type: Spontaneous
  Country: US (occurrence: US)
  Receive Date: 20210204
  Receipt Date: 20210204
  Transmission Date: 20210419
  Serious: Yes (Life-Threatening, Hospitalization, Other)
  Sender: FDA-Public Use
  Company Number: US-ALVOGEN-2021-ALVOGEN-116400

PATIENT
  Age: 31 Year
  Sex: Female

DRUGS (1)
  1. DAPSONE. [Suspect]
     Active Substance: DAPSONE
     Indication: HYPERSENSITIVITY VASCULITIS

REACTIONS (6)
  - Liver injury [Recovering/Resolving]
  - Hyperbilirubinaemia [Recovered/Resolved]
  - Drug reaction with eosinophilia and systemic symptoms [Recovering/Resolving]
  - Haemolytic anaemia [Recovering/Resolving]
  - Cerebral infarction [Recovering/Resolving]
  - Eosinophilic myocarditis [Recovering/Resolving]
